FAERS Safety Report 6766706-4 (Version None)
Quarter: 2010Q2

REPORT INFORMATION
  Report Type: 
  Country: None (occurrence: None)
  Receive Date: 20100611
  Receipt Date: 20100603
  Transmission Date: 20101027
  Serious: Yes (Hospitalization)
  Sender: FDA-Public Use
  Company Number: SE-ABBOTT-10P-150-0649247-00

PATIENT
  Sex: Female

DRUGS (3)
  1. CLARITHROMYCIN [Suspect]
     Indication: GASTRIC ULCER
     Dates: start: 20100521
  2. NEXIUM [Suspect]
     Indication: GASTRIC ULCER
     Dates: start: 20100521
  3. AMIMOX [Suspect]
     Indication: GASTRIC ULCER
     Dates: start: 20100521

REACTIONS (9)
  - DYSPNOEA [None]
  - GENITAL BURNING SENSATION [None]
  - HEART RATE DECREASED [None]
  - HYPOAESTHESIA [None]
  - PARAESTHESIA [None]
  - RASH ERYTHEMATOUS [None]
  - SKIN BURNING SENSATION [None]
  - THROMBOSIS [None]
  - VOMITING [None]
